FAERS Safety Report 12563147 (Version 2)
Quarter: 2016Q3

REPORT INFORMATION
  Report Type: Spontaneous
  Country: US (occurrence: US)
  Receive Date: 20160715
  Receipt Date: 20160815
  Transmission Date: 20161109
  Serious: No
  Sender: FDA-Public Use
  Company Number: US-PFIZER INC-2016338425

PATIENT
  Age: 61 Year
  Sex: Female

DRUGS (4)
  1. XELJANZ [Suspect]
     Active Substance: TOFACITINIB CITRATE
     Indication: TYPE 2 DIABETES MELLITUS
  2. XELJANZ [Suspect]
     Active Substance: TOFACITINIB CITRATE
     Indication: GLAUCOMA
  3. XELJANZ [Suspect]
     Active Substance: TOFACITINIB CITRATE
     Indication: HYPOTHYROIDISM
     Dosage: 5 MG, UNK
     Dates: end: 20160711
  4. XELJANZ [Suspect]
     Active Substance: TOFACITINIB CITRATE
     Indication: RHEUMATOID ARTHRITIS

REACTIONS (1)
  - Drug ineffective [Unknown]
